FAERS Safety Report 14007355 (Version 1)
Quarter: 2017Q3

REPORT INFORMATION
  Report Type: Spontaneous
  Country: US (occurrence: None)
  Receive Date: 20170922
  Receipt Date: 20170922
  Transmission Date: 20171128
  Serious: Yes (Hospitalization)
  Sender: FDA-Public Use
  Company Number: None

PATIENT
  Age: 47 Year
  Sex: Male
  Weight: 95.5 kg

DRUGS (1)
  1. COPAXONE [Suspect]
     Active Substance: GLATIRAMER ACETATE
     Indication: MULTIPLE SCLEROSIS
     Dosage: 40MG 3 TIMES A WEEK
     Route: 058

REACTIONS (8)
  - Decreased appetite [None]
  - Personal relationship issue [None]
  - Band sensation [None]
  - Migraine [None]
  - Feeling cold [None]
  - Insomnia [None]
  - Multiple sclerosis [None]
  - Drug dose omission [None]

NARRATIVE: CASE EVENT DATE: 20170727
